FAERS Safety Report 19415228 (Version 3)
Quarter: 2021Q3

REPORT INFORMATION
  Report Type: Spontaneous
  Country: US (occurrence: US)
  Receive Date: 20210615
  Receipt Date: 20210812
  Transmission Date: 20211014
  Serious: No
  Sender: FDA-Public Use
  Company Number: US-TEVA-2021-US-1921538

PATIENT
  Age: 58 Year
  Sex: Male
  Weight: 78.4 kg

DRUGS (11)
  1. FENOFIBRATE. [Concomitant]
     Active Substance: FENOFIBRATE
  2. CLONAZEPAM. [Concomitant]
     Active Substance: CLONAZEPAM
  3. TRAZODONE [Concomitant]
     Active Substance: TRAZODONE HYDROCHLORIDE
  4. COLACE [Concomitant]
     Active Substance: DOCUSATE SODIUM
  5. LIORESAL [Suspect]
     Active Substance: BACLOFEN
     Dosage: WEANED HIM OFF STARTING FROM 3 TO 2 PILLS FOR 5 DAYS, THEN 2 PILLS TO 1 PILL FOR 5 DAYS, THE THIRD D
     Route: 048
     Dates: start: 20210525
  6. LIORESAL [Suspect]
     Active Substance: BACLOFEN
     Route: 048
  7. LIORESAL [Suspect]
     Active Substance: BACLOFEN
     Route: 048
  8. PROPRANOLOL [Concomitant]
     Active Substance: PROPRANOLOL HYDROCHLORIDE
  9. MAXEPA [Concomitant]
     Active Substance: DOCONEXENT\ICOSAPENT
  10. WELCHOL [Concomitant]
     Active Substance: COLESEVELAM HYDROCHLORIDE
  11. ESCITALOPRAM [Concomitant]
     Active Substance: ESCITALOPRAM OXALATE

REACTIONS (9)
  - Headache [Unknown]
  - Off label use [Unknown]
  - Photosensitivity reaction [Not Recovered/Not Resolved]
  - Insomnia [Not Recovered/Not Resolved]
  - Thinking abnormal [Unknown]
  - Vision blurred [Not Recovered/Not Resolved]
  - Anxiety [Not Recovered/Not Resolved]
  - Disturbance in attention [Unknown]
  - Feeling abnormal [Not Recovered/Not Resolved]
